FAERS Safety Report 24753358 (Version 1)
Quarter: 2024Q4

REPORT INFORMATION
  Report Type: Spontaneous
  Country: NL (occurrence: NL)
  Receive Date: 20241219
  Receipt Date: 20241219
  Transmission Date: 20250115
  Serious: Yes (Life-Threatening, Hospitalization)
  Sender: ACCORD
  Company Number: None

PATIENT
  Age: 42 Year
  Sex: Male
  Weight: 65 kg

DRUGS (6)
  1. CLOZAPINE [Suspect]
     Active Substance: CLOZAPINE
     Indication: Schizophrenia
     Dosage: TABLET 200 MG?1X PER DAY 2 PIECES
     Dates: start: 20130501
  2. FLUVOXAMINE [Concomitant]
     Active Substance: FLUVOXAMINE
     Dosage: TABLET, 50 MG (MILLIGRAM)
  3. ATORVASTATIN [Concomitant]
     Active Substance: ATORVASTATIN
     Dosage: TABLET, 10 MG (MILLIGRAM)
  4. VALPROIC ACID [Concomitant]
     Active Substance: VALPROIC ACID
     Dosage: MAAGSAPRESISTENTE TABLET, 500 MG
  5. CLOPIDOGREL [Concomitant]
     Active Substance: CLOPIDOGREL BISULFATE
     Dosage: TABLET, 75 MG (MILLIGRAM)
  6. PANTOPRAZOLE [Concomitant]
     Active Substance: PANTOPRAZOLE
     Dosage: MAAGSAPRESISTENTE TABLET, 20 MG (MILLIGRAM)

REACTIONS (3)
  - Pericarditis [Recovering/Resolving]
  - Serositis [Recovering/Resolving]
  - Pericarditis constrictive [Unknown]

NARRATIVE: CASE EVENT DATE: 20240812
